FAERS Safety Report 12491319 (Version 1)
Quarter: 2016Q2

REPORT INFORMATION
  Report Type: Spontaneous
  Country: IT (occurrence: IT)
  Receive Date: 20160623
  Receipt Date: 20160623
  Transmission Date: 20160815
  Serious: Yes (Other)
  Sender: FDA-Public Use
  Company Number: IT-ACCORD-041626

PATIENT
  Age: 46 Year
  Sex: Female

DRUGS (4)
  1. ONDANSETRON ACCORD [Concomitant]
     Active Substance: ONDANSETRON
     Indication: PROPHYLAXIS OF NAUSEA AND VOMITING
     Dosage: STRENGTH 2 MG/ML
     Route: 042
     Dates: start: 20160601, end: 20160601
  2. PACLITAXEL ACCORD [Suspect]
     Active Substance: PACLITAXEL
     Indication: BREAST CANCER
     Dosage: STRENGTH 6 MG/ML
     Route: 041
     Dates: start: 20160601, end: 20160601
  3. RANITIDINE. [Concomitant]
     Active Substance: RANITIDINE
     Dosage: STRENGTH 50 MG/5 ML
     Route: 042
     Dates: start: 20160601, end: 20160601
  4. CLARITIN [Concomitant]
     Active Substance: LORATADINE
     Dosage: STRENGTH 10 MG
     Route: 048
     Dates: start: 20160601, end: 20160601

REACTIONS (5)
  - Hyperhidrosis [Recovered/Resolved]
  - Abdominal pain upper [Recovered/Resolved]
  - Hypersensitivity [Recovered/Resolved]
  - Malaise [Recovered/Resolved]
  - Nausea [Recovered/Resolved]

NARRATIVE: CASE EVENT DATE: 20160601
